FAERS Safety Report 10420392 (Version 1)
Quarter: 2014Q3

REPORT INFORMATION
  Report Type: Spontaneous
  Country: US (occurrence: None)
  Receive Date: 20140701
  Receipt Date: 20140701
  Transmission Date: 20150326
  Serious: No
  Sender: FDA-Public Use
  Company Number: 1000066642

PATIENT
  Sex: Female

DRUGS (4)
  1. LINZESS [Suspect]
     Active Substance: LINACLOTIDE
     Indication: IRRITABLE BOWEL SYNDROME
     Route: 048
     Dates: start: 20140409
  2. MIRALAX (POLYETHYLEN EGLYCOL)(POLYETHYLENE GLYCOL) [Concomitant]
  3. LINZESS [Suspect]
     Active Substance: LINACLOTIDE
     Route: 048
     Dates: start: 20140409
  4. NEXIUM (ESOMEPRAZOLE)(ESOMEPRAZOLE) [Concomitant]

REACTIONS (5)
  - Tremor [None]
  - Diarrhoea [None]
  - Asthenia [None]
  - Abdominal distension [None]
  - Gastrooesophageal reflux disease [None]

NARRATIVE: CASE EVENT DATE: 20140409
